FAERS Safety Report 22389177 (Version 2)
Quarter: 2023Q4

REPORT INFORMATION
  Report Type: Spontaneous
  Country: PL (occurrence: PL)
  Receive Date: 20230531
  Receipt Date: 20231017
  Transmission Date: 20240110
  Serious: Yes (Other)
  Sender: FDA-Public Use
  Company Number: PL-SUN PHARMACEUTICAL INDUSTRIES LTD-2023R1-389025

PATIENT
  Age: 60 Year
  Sex: Male

DRUGS (26)
  1. LAMOTRIGINE [Suspect]
     Active Substance: LAMOTRIGINE
     Indication: Bipolar disorder
     Dosage: 150 MILLIGRAM, QD
     Route: 065
  2. LORAZEPAM [Suspect]
     Active Substance: LORAZEPAM
     Indication: Bipolar disorder
     Dosage: 0.5-1 MG
     Route: 065
  3. LORAZEPAM [Suspect]
     Active Substance: LORAZEPAM
     Dosage: 2.5 MILLIGRAM, QD
     Route: 065
  4. LORAZEPAM [Suspect]
     Active Substance: LORAZEPAM
     Dosage: 8 UNK
     Route: 065
  5. PAROXETINE [Suspect]
     Active Substance: PAROXETINE
     Indication: Depression
     Dosage: UNK
     Route: 065
  6. PAROXETINE [Suspect]
     Active Substance: PAROXETINE
     Indication: Anxiety
     Dosage: 30 MILLIGRAM
     Route: 065
  7. PAROXETINE [Suspect]
     Active Substance: PAROXETINE
     Indication: Bipolar disorder
     Dosage: 40 MILLIGRAM, QD
     Route: 065
  8. PROMETHAZINE [Suspect]
     Active Substance: PROMETHAZINE HYDROCHLORIDE
     Indication: Anxiety
     Dosage: 100 MILLIGRAM/24H
     Route: 065
  9. QUETIAPINE [Suspect]
     Active Substance: QUETIAPINE
     Indication: Anxiety
     Dosage: UNK
     Route: 065
  10. QUETIAPINE [Suspect]
     Active Substance: QUETIAPINE
     Indication: Bipolar disorder
     Dosage: 300 MILLIGRAM/24 H
     Route: 065
  11. PREGABALIN [Suspect]
     Active Substance: PREGABALIN
     Indication: Product used for unknown indication
     Dosage: 150 MILLIGRAM, QD
     Route: 065
  12. PREGABALIN [Suspect]
     Active Substance: PREGABALIN
     Dosage: 150 MILLIGRAM, QH
     Route: 065
  13. VENLAFAXINE [Suspect]
     Active Substance: VENLAFAXINE HYDROCHLORIDE
     Indication: Bipolar disorder
     Dosage: 75 MILLIGRAM, QD
     Route: 065
  14. VENLAFAXINE [Suspect]
     Active Substance: VENLAFAXINE HYDROCHLORIDE
     Dosage: 300 MILLIGRAM, QD
     Route: 065
  15. VENLAFAXINE [Suspect]
     Active Substance: VENLAFAXINE HYDROCHLORIDE
     Dosage: 150 MILLIGRAM, QD
     Route: 065
  16. ZOLPIDEM [Suspect]
     Active Substance: ZOLPIDEM TARTRATE
     Indication: Bipolar disorder
     Dosage: 10 MILLIGRAM, QD
     Route: 065
  17. HYDROXYZINE [Suspect]
     Active Substance: HYDROXYZINE HYDROCHLORIDE
     Indication: Anxiety
     Dosage: UP TO 125 MILLIGRAM/24H
     Route: 065
  18. HYDROXYZINE [Suspect]
     Active Substance: HYDROXYZINE HYDROCHLORIDE
     Indication: Bipolar disorder
     Dosage: 100 MILLIGRAM, QH
     Route: 065
  19. MIANSERIN [Suspect]
     Active Substance: MIANSERIN
     Indication: Sleep disorder
     Dosage: 30 MILLIGRAM, QD
     Route: 065
  20. REBOXETINE [Suspect]
     Active Substance: REBOXETINE
     Indication: Bipolar disorder
     Dosage: 4 MILLIGRAM, QD
     Route: 065
  21. REBOXETINE [Suspect]
     Active Substance: REBOXETINE
     Dosage: 8 MILLIGRAM, QD
     Route: 065
  22. REBOXETINE [Suspect]
     Active Substance: REBOXETINE
     Dosage: 8 MILLIGRAM QH
     Route: 065
  23. REBOXETINE [Suspect]
     Active Substance: REBOXETINE
     Dosage: 4 MILLIGRAM QH
     Route: 065
  24. DIETARY SUPPLEMENT [Suspect]
     Active Substance: DIETARY SUPPLEMENT
     Indication: Bipolar disorder
     Dosage: 1-3 ML / 24 H. 2 MMOL/L
     Route: 065
  25. LITHIUM CARBONATE [Concomitant]
     Active Substance: LITHIUM CARBONATE
     Indication: Bipolar disorder
     Dosage: 1500 MILLIGRAM, QD
     Route: 065
  26. LITHIUM CARBONATE [Concomitant]
     Active Substance: LITHIUM CARBONATE
     Dosage: 1250 MILLIGRAM, QD
     Route: 065

REACTIONS (9)
  - Therapeutic product effect incomplete [Unknown]
  - Drug dependence [Recovered/Resolved]
  - Anxiety [Recovering/Resolving]
  - Depressed mood [Recovering/Resolving]
  - Fear [Recovering/Resolving]
  - Hepatic enzyme increased [Unknown]
  - Off label use [Unknown]
  - Sleep disorder [Recovering/Resolving]
  - Withdrawal syndrome [Recovered/Resolved]
